FAERS Safety Report 7727300 (Version 5)
Quarter: 2015Q2

REPORT INFORMATION
  Report Type: Spontaneous
  Country: US (occurrence: US)
  Receive Date: 20101222
  Receipt Date: 20150525
  Transmission Date: 20150821
  Serious: Yes (Hospitalization, Other)
  Sender: FDA-Public Use
  Company Number: US-JNJFOC-20100807795

PATIENT
  Age: 54 Year
  Sex: Female
  Weight: 88.45 kg

DRUGS (5)
  1. CIPROFLOXACIN. [Suspect]
     Active Substance: CIPROFLOXACIN
     Indication: LYME DISEASE
     Route: 065
  2. LEVAQUIN [Suspect]
     Active Substance: LEVOFLOXACIN
     Indication: OSTEOMYELITIS
     Route: 048
     Dates: start: 20080101, end: 20080930
  3. LEVAQUIN [Suspect]
     Active Substance: LEVOFLOXACIN
     Indication: LYME DISEASE
     Route: 048
     Dates: start: 20080101, end: 20080930
  4. LEVAQUIN [Suspect]
     Active Substance: LEVOFLOXACIN
     Indication: OSTEOMYELITIS
     Route: 048
     Dates: start: 20080101, end: 20080930
  5. AVELOX [Suspect]
     Active Substance: MOXIFLOXACIN HYDROCHLORIDE
     Indication: PRODUCT USED FOR UNKNOWN INDICATION
     Route: 065

REACTIONS (3)
  - Drug ineffective [Unknown]
  - Tendonitis [Unknown]
  - Tendon rupture [Unknown]

NARRATIVE: CASE EVENT DATE: 200808
